FAERS Safety Report 12690010 (Version 5)
Quarter: 2017Q1

REPORT INFORMATION
  Report Type: Report from Study
  Country: IL (occurrence: IL)
  Receive Date: 20160826
  Receipt Date: 20170106
  Transmission Date: 20170428
  Serious: Yes (Hospitalization, Other)
  Sender: FDA-Public Use
  Company Number: IL-TEVA-686369ACC

PATIENT
  Age: 67 Year
  Sex: Female

DRUGS (10)
  1. CLONEX [Concomitant]
     Dosage: TAKEN DAILY
     Route: 048
  2. TEVAPIRIN [Concomitant]
  3. BACLOSAL [Concomitant]
  4. PAXXET [Concomitant]
  5. GLUCOMIN [Concomitant]
     Active Substance: METFORMIN HYDROCHLORIDE
  6. SIMVAXON [Concomitant]
  7. VITAMIN D [Concomitant]
     Active Substance: CHOLECALCIFEROL
  8. COPAXONE [Suspect]
     Active Substance: GLATIRAMER ACETATE
     Dosage: 40MG/ML
     Route: 058
     Dates: start: 20150429, end: 20160726
  9. COPAXONE [Suspect]
     Active Substance: GLATIRAMER ACETATE
     Dates: start: 20080110, end: 20150428
  10. COPAXONE [Suspect]
     Active Substance: GLATIRAMER ACETATE
     Indication: MULTIPLE SCLEROSIS
     Dosage: 20 MILLIGRAM/MILLILITERS DAILY;
     Route: 058
     Dates: start: 20160728

REACTIONS (5)
  - General physical health deterioration [Recovering/Resolving]
  - Somnolence [Not Recovered/Not Resolved]
  - Therapy change [Unknown]
  - Urinary tract infection [Recovering/Resolving]
  - Body temperature fluctuation [Not Recovered/Not Resolved]

NARRATIVE: CASE EVENT DATE: 2015
